FAERS Safety Report 14577197 (Version 1)
Quarter: 2018Q1

REPORT INFORMATION
  Report Type: Spontaneous
  Country: US (occurrence: US)
  Receive Date: 20180225
  Receipt Date: 20180225
  Transmission Date: 20180509
  Serious: No
  Sender: FDA-Public Use
  Company Number: None

PATIENT
  Age: 59 Year
  Sex: Female

DRUGS (1)
  1. STIVARGA [Suspect]
     Active Substance: REGORAFENIB
     Indication: NEOPLASM MALIGNANT
     Dosage: 160MG DAILY 21 DAYS ON AND 7 DAYS OFF BY MOUTH
     Route: 048
     Dates: start: 20180113

REACTIONS (1)
  - Oral pain [None]

NARRATIVE: CASE EVENT DATE: 20180113
